FAERS Safety Report 8533190-X (Version None)
Quarter: 2012Q2

REPORT INFORMATION
  Report Type: 
  Country: None (occurrence: None)
  Receive Date: 20120412
  Receipt Date: 20100601
  Transmission Date: 20120825
  Serious: Yes (Other)
  Sender: FDA-Public Use
  Company Number: PHHY2010US35756

PATIENT

DRUGS (2)
  1. AMBIEN [Suspect]
     Dosage: 10 MG
  2. CLOZARIL [Suspect]
     Dosage: 300 MG
     Dates: start: 20070101

REACTIONS (1)
  - ANTIPSYCHOTIC DRUG LEVEL INCREASED [None]
